FAERS Safety Report 21944741 (Version 1)
Quarter: 2023Q1

REPORT INFORMATION
  Report Type: Spontaneous
  Country: GB (occurrence: GB)
  Receive Date: 20230202
  Receipt Date: 20230202
  Transmission Date: 20230418
  Serious: Yes (Other)
  Sender: FDA-Public Use
  Company Number: GB-GSKCCFEMEA-Case-01659868_AE-66878

PATIENT

DRUGS (2)
  1. FLUTICASONE FUROATE\VILANTEROL TRIFENATATE [Suspect]
     Active Substance: FLUTICASONE FUROATE\VILANTEROL TRIFENATATE
     Indication: Asthma
     Dosage: UNK
  2. LANSOPRAZOLE [Concomitant]
     Active Substance: LANSOPRAZOLE
     Indication: Reflux gastritis
     Dosage: UNK

REACTIONS (4)
  - Pulmonary congestion [Unknown]
  - Haemoptysis [Unknown]
  - Pharyngeal inflammation [Unknown]
  - Treatment noncompliance [Unknown]
